FAERS Safety Report 4482381-6 (Version None)
Quarter: 2004Q4

REPORT INFORMATION
  Report Type: 
  Country: None (occurrence: None)
  Receive Date: 20041022
  Receipt Date: 20031029
  Transmission Date: 20050328
  Serious: No
  Sender: FDA-Public Use
  Company Number: US-BRISTOL-MYERS SQUIBB COMPANY-12421418

PATIENT
  Age: 47 Year
  Sex: Female
  Weight: 73 kg

DRUGS (4)
  1. BUSPAR [Suspect]
     Indication: BIPOLAR DISORDER
     Route: 048
     Dates: start: 20030915
  2. MORPHINE SULFATE [Concomitant]
     Dosage: TWO 30 MG TABS TID AND ONE 15 MG TAB TID.
  3. PREMARIN [Concomitant]
  4. LEVOXYL [Concomitant]

REACTIONS (1)
  - ALOPECIA [None]
